FAERS Safety Report 9610247 (Version 2)
Quarter: 2013Q4

REPORT INFORMATION
  Report Type: Spontaneous
  Country: US (occurrence: US)
  Receive Date: 20131009
  Receipt Date: 20131009
  Transmission Date: 20140711
  Serious: No
  Sender: FDA-Public Use
  Company Number: US-PURDUE-USA-2012-0095886

PATIENT
  Age: 77 Year
  Sex: Male

DRUGS (4)
  1. BUTRANS [Suspect]
     Indication: PAIN
     Dosage: 10 MCG, WEEKLY
     Route: 062
     Dates: start: 20121108, end: 20121108
  2. ADVAIR [Concomitant]
     Indication: RESPIRATORY DISORDER
     Dosage: UNK UNK, DAILY
  3. SYMBICORT [Concomitant]
     Indication: RESPIRATORY DISORDER
     Dosage: UNK UNK, DAILY
  4. SPIRIVA [Concomitant]
     Indication: RESPIRATORY DISORDER
     Dosage: UNK, DAILY

REACTIONS (4)
  - Choking sensation [Recovered/Resolved]
  - Respiratory depression [Unknown]
  - Feeling abnormal [Recovered/Resolved]
  - Dyspnoea [Recovered/Resolved]
